FAERS Safety Report 7530837-1 (Version None)
Quarter: 2011Q2

REPORT INFORMATION
  Report Type: 
  Country: None (occurrence: None)
  Receive Date: 20110607
  Receipt Date: 20110525
  Transmission Date: 20111010
  Serious: Yes (Hospitalization)
  Sender: FDA-Public Use
  Company Number: US-MYLANLABS-2011S1011133

PATIENT
  Age: 20 Year
  Sex: Female

DRUGS (1)
  1. ZONISAMIDE [Suspect]
     Dosage: INGESTED UP TO 8.7G IN A SUICIDE ATTEMPT
     Route: 048

REACTIONS (7)
  - VISION BLURRED [None]
  - CONVULSION [None]
  - CHEST PAIN [None]
  - NAUSEA [None]
  - DIZZINESS [None]
  - HEADACHE [None]
  - OVERDOSE [None]
